FAERS Safety Report 10607329 (Version 1)
Quarter: 2014Q4

REPORT INFORMATION
  Report Type: Spontaneous
  Country: US (occurrence: None)
  Receive Date: 20141124
  Receipt Date: 20141124
  Transmission Date: 20150529
  Serious: Yes (Hospitalization)
  Sender: FDA-Public Use
  Company Number: None

PATIENT
  Age: 72 Year
  Sex: Female
  Weight: 92.4 kg

DRUGS (21)
  1. FOSINOPRIL [Concomitant]
     Active Substance: FOSINOPRIL
  2. AMLODIPINE [Concomitant]
     Active Substance: AMLODIPINE BESYLATE
  3. ASA [Concomitant]
     Active Substance: ASPIRIN
  4. LASIX [Concomitant]
     Active Substance: FUROSEMIDE
  5. ZYRTEC [Concomitant]
     Active Substance: CETIRIZINE HYDROCHLORIDE
  6. DIROLIMUS [Concomitant]
  7. PRILOSEC [Concomitant]
     Active Substance: OMEPRAZOLE MAGNESIUM
  8. ELAVIL [Concomitant]
     Active Substance: AMITRIPTYLINE HYDROCHLORIDE
  9. TRAMADOL [Concomitant]
     Active Substance: TRAMADOL
  10. NOVOLOG [Suspect]
     Active Substance: INSULIN ASPART
     Indication: DIABETES MELLITUS
     Dosage: 41UNITS, QAM, SQ
     Route: 058
  11. PREDNISONE. [Concomitant]
     Active Substance: PREDNISONE
  12. LIDODERM [Concomitant]
     Active Substance: LIDOCAINE
  13. HUMULIN N [Suspect]
     Active Substance: INSULIN HUMAN
     Indication: DIABETES MELLITUS
     Dosage: 30UNITS, QAM, SQ
     Route: 058
  14. NASONEX [Concomitant]
     Active Substance: MOMETASONE FUROATE
  15. LIPITOR [Concomitant]
     Active Substance: ATORVASTATIN CALCIUM
  16. VOLTAREN [Concomitant]
     Active Substance: DICLOFENAC SODIUM
  17. GABAPENTIN. [Concomitant]
     Active Substance: GABAPENTIN
  18. MVI [Concomitant]
     Active Substance: VITAMINS
  19. VITAMIN D [Concomitant]
     Active Substance: CHOLECALCIFEROL
  20. ATARAX [Concomitant]
     Active Substance: HYDROXYZINE\HYDROXYZINE HYDROCHLORIDE
  21. FENOFIBRATE. [Concomitant]
     Active Substance: FENOFIBRATE

REACTIONS (3)
  - Drug administration error [None]
  - Hypoglycaemia [None]
  - Diarrhoea [None]

NARRATIVE: CASE EVENT DATE: 20140421
